FAERS Safety Report 20136416 (Version 3)
Quarter: 2021Q4

REPORT INFORMATION
  Report Type: Spontaneous
  Country: TW (occurrence: TW)
  Receive Date: 20211201
  Receipt Date: 20211216
  Transmission Date: 20220303
  Serious: Yes (Other)
  Sender: FDA-Public Use
  Company Number: TW-NOVARTISPH-NVSC2021TW271590

PATIENT
  Sex: Male
  Weight: 40 kg

DRUGS (18)
  1. RUXOLITINIB [Suspect]
     Active Substance: RUXOLITINIB
     Indication: Acute graft versus host disease
     Dosage: UNK
     Route: 065
  2. RUXOLITINIB [Suspect]
     Active Substance: RUXOLITINIB
     Dosage: UNK
     Route: 065
     Dates: start: 202111
  3. RUXOLITINIB [Suspect]
     Active Substance: RUXOLITINIB
     Dosage: 0.5 UNK (5 MG)
     Route: 048
     Dates: start: 20211116, end: 20211125
  4. RUXOLITINIB [Suspect]
     Active Substance: RUXOLITINIB
     Dosage: 0.5 UNK, BID
     Route: 048
     Dates: start: 20211125, end: 20211202
  5. RUXOLITINIB [Suspect]
     Active Substance: RUXOLITINIB
     Dosage: 1 UNK, BID
     Route: 048
     Dates: start: 20211202
  6. CYCLOSPORINE [Suspect]
     Active Substance: CYCLOSPORINE
     Indication: Product used for unknown indication
     Dosage: UNK
     Route: 065
  7. CYCLOSPORINE [Suspect]
     Active Substance: CYCLOSPORINE
     Dosage: 75 MG, BID
     Route: 048
     Dates: start: 20210907
  8. METHYLPREDNISOLONE [Concomitant]
     Active Substance: METHYLPREDNISOLONE
     Indication: Product used for unknown indication
     Dosage: UNK
     Route: 065
  9. PREDNISONE [Concomitant]
     Active Substance: PREDNISONE
     Indication: Product used for unknown indication
     Dosage: UNK
     Route: 065
  10. PREDNISONE [Concomitant]
     Active Substance: PREDNISONE
     Dosage: 6 UNK, TID
     Route: 048
     Dates: start: 20211116, end: 20211119
  11. PREDNISONE [Concomitant]
     Active Substance: PREDNISONE
     Dosage: 4.5 UNK, BID
     Route: 048
     Dates: start: 20211120, end: 20211122
  12. PREDNISONE [Concomitant]
     Active Substance: PREDNISONE
     Dosage: 2.5 UNK, BID
     Route: 048
     Dates: start: 20211123, end: 20211125
  13. PREDNISONE [Concomitant]
     Active Substance: PREDNISONE
     Dosage: 2.5 UNK, QD
     Route: 048
     Dates: start: 20211126, end: 20211128
  14. PREDNISONE [Concomitant]
     Active Substance: PREDNISONE
     Dosage: 2 UNK, QD
     Route: 048
     Dates: start: 20211129, end: 20211130
  15. PREDNISONE [Concomitant]
     Active Substance: PREDNISONE
     Dosage: 1 UNK, QD
     Route: 048
     Dates: start: 20211201, end: 20211202
  16. PREDNISONE [Concomitant]
     Active Substance: PREDNISONE
     Dosage: 2 UNK, QOD
     Route: 048
     Dates: start: 20211203
  17. PREDNISONE [Concomitant]
     Active Substance: PREDNISONE
     Dosage: 2 UNK, QOD
     Route: 048
     Dates: start: 20211205
  18. PREDNISONE [Concomitant]
     Active Substance: PREDNISONE
     Dosage: 2 UNK, QOD
     Route: 048
     Dates: start: 20211207

REACTIONS (7)
  - Acute graft versus host disease in skin [Recovered/Resolved]
  - Graft versus host disease in gastrointestinal tract [Recovered/Resolved]
  - Acute graft versus host disease in liver [Recovered/Resolved]
  - Acute graft versus host disease [Recovered/Resolved]
  - Rash [Unknown]
  - Product use in unapproved indication [Unknown]
  - Inappropriate schedule of product administration [Unknown]

NARRATIVE: CASE EVENT DATE: 20210918
